FAERS Safety Report 5746451-4 (Version None)
Quarter: 2008Q2

REPORT INFORMATION
  Report Type: 
  Country: None (occurrence: None)
  Receive Date: 20080522
  Receipt Date: 20080521
  Transmission Date: 20081010
  Serious: Yes (Hospitalization, Disabling)
  Sender: FDA-Public Use
  Company Number: B0514785A

PATIENT
  Age: 12 Year
  Sex: Female

DRUGS (7)
  1. AUGMENTIN '125' [Suspect]
     Dosage: 625MG TWICE PER DAY
     Dates: start: 20071224, end: 20071227
  2. CEFOTAXIM [Concomitant]
     Dates: start: 20051227, end: 20060106
  3. AZITHROMYCIN [Concomitant]
  4. CLARITIN [Concomitant]
     Dosage: 1TAB PER DAY
     Dates: start: 20071224, end: 20071229
  5. ACETYLCYSTEINE [Concomitant]
     Route: 065
     Dates: start: 20071224, end: 20071229
  6. UNKNOWN DRUG [Concomitant]
  7. EUPHYLLINE [Concomitant]
     Dosage: 1TAB TWICE PER DAY
     Route: 065

REACTIONS (2)
  - DRUG INEFFECTIVE [None]
  - PNEUMONIA [None]
